FAERS Safety Report 8858563 (Version 2)
Quarter: 2012Q4

REPORT INFORMATION
  Report Type: Report from Study
  Country: CO (occurrence: CO)
  Receive Date: 20121024
  Receipt Date: 20121109
  Transmission Date: 20130627
  Serious: Yes (Death, Hospitalization)
  Sender: FDA-Public Use
  Company Number: CO-PFIZER INC-2009281914

PATIENT
  Age: 62 Year
  Sex: Male

DRUGS (4)
  1. SUTENT [Suspect]
     Indication: RENAL CANCER
     Dosage: 50 mg, 1x/day
     Route: 048
     Dates: start: 20090912
  2. MORPHINE [Concomitant]
     Dosage: 3 Gtt, 4x/day
  3. ACETAMINOPHEN [Concomitant]
     Dosage: 2 tablets, 4x/day
  4. SUCRALFATE [Concomitant]
     Dosage: 10 mg, 2x/day

REACTIONS (2)
  - Death [Fatal]
  - Haematuria [Recovered/Resolved]
